FAERS Safety Report 13965955 (Version 1)
Quarter: 2017Q3

REPORT INFORMATION
  Report Type: Spontaneous
  Country: JP (occurrence: JP)
  Receive Date: 20170913
  Receipt Date: 20170913
  Transmission Date: 20171128
  Serious: No
  Sender: FDA-Public Use
  Company Number: JP-ELI_LILLY_AND_COMPANY-JP201709002677

PATIENT
  Age: 66 Year
  Sex: Female

DRUGS (8)
  1. PREDONINE [Suspect]
     Active Substance: PREDNISOLONE
     Dosage: 7.5 MG, DAILY
     Route: 048
     Dates: start: 20130301, end: 20130611
  2. PREDONINE [Suspect]
     Active Substance: PREDNISOLONE
     Dosage: 5 MG, DAILY
     Route: 048
     Dates: start: 20150826
  3. ADCIRCA [Suspect]
     Active Substance: TADALAFIL
     Indication: VASCULAR INSUFFICIENCY
     Dosage: 20 MG, DAILY
     Route: 048
     Dates: start: 20150601, end: 20150623
  4. PROGRAF [Concomitant]
     Active Substance: TACROLIMUS\TACROLIMUS ANHYDROUS
     Indication: SYSTEMIC LUPUS ERYTHEMATOSUS
     Dosage: 1 DF, DAILY
     Route: 048
     Dates: start: 20150924
  5. ADCIRCA [Suspect]
     Active Substance: TADALAFIL
     Dosage: 20 MG, BID
     Route: 048
     Dates: start: 20151021, end: 20151117
  6. PREDONINE [Suspect]
     Active Substance: PREDNISOLONE
     Indication: PRODUCT USED FOR UNKNOWN INDICATION
     Dosage: 5 MG, BID
     Route: 048
     Dates: start: 20130107, end: 20130228
  7. TRACLEER [Concomitant]
     Active Substance: BOSENTAN
     Indication: PRODUCT USED FOR UNKNOWN INDICATION
     Route: 065
  8. REVATIO [Suspect]
     Active Substance: SILDENAFIL CITRATE
     Indication: VASCULAR INSUFFICIENCY
     Dosage: 20 MG, DAILY
     Route: 048
     Dates: start: 20151209, end: 20170509

REACTIONS (5)
  - Myalgia [Recovered/Resolved]
  - Visual acuity reduced [Not Recovered/Not Resolved]
  - Off label use [Recovered/Resolved]
  - Hot flush [Recovered/Resolved]
  - Myalgia [Unknown]

NARRATIVE: CASE EVENT DATE: 201506
